FAERS Safety Report 6099972-1 (Version None)
Quarter: 2009Q1

REPORT INFORMATION
  Report Type: 
  Country: None (occurrence: None)
  Receive Date: 20090303
  Receipt Date: 20090224
  Transmission Date: 20090719
  Serious: Yes (Hospitalization)
  Sender: FDA-Public Use
  Company Number: PHHO2008ES14464

PATIENT
  Sex: Male
  Weight: 91.5 kg

DRUGS (5)
  1. CERTICAN [Suspect]
     Indication: RENAL TRANSPLANT
     Dosage: 3 MG, DAILY
     Route: 048
     Dates: start: 20080911
  2. MYFORTIC [Suspect]
     Indication: RENAL TRANSPLANT
     Dosage: 720 MG, DAILY
     Route: 048
     Dates: start: 20080603, end: 20081203
  3. MYFORTIC [Suspect]
     Dosage: 360 MG, DAILY
     Route: 048
     Dates: start: 20081204, end: 20081212
  4. MYFORTIC [Suspect]
     Dosage: UNK
     Dates: start: 20090102
  5. TACROLIMUS COMP-TAC+ [Suspect]
     Indication: RENAL TRANSPLANT
     Dosage: UNK
     Dates: start: 20080603, end: 20080918

REACTIONS (6)
  - ABDOMINAL PAIN [None]
  - DIARRHOEA [None]
  - GASTROINTESTINAL MOTILITY DISORDER [None]
  - GASTROINTESTINAL SOUNDS ABNORMAL [None]
  - HAEMATOCHEZIA [None]
  - IMPAIRED GASTRIC EMPTYING [None]
